FAERS Safety Report 7433459-6 (Version None)
Quarter: 2011Q2

REPORT INFORMATION
  Report Type: 
  Country: None (occurrence: None)
  Receive Date: 20110422
  Receipt Date: 20110411
  Transmission Date: 20111010
  Serious: Yes (Other)
  Sender: FDA-Public Use
  Company Number: US-CELGENEUS-163-21880-11041177

PATIENT
  Sex: Male
  Weight: 93.07 kg

DRUGS (11)
  1. ZOCOR [Concomitant]
     Route: 065
  2. LEVITRA [Concomitant]
     Route: 065
  3. LISINOPRIL [Concomitant]
     Route: 065
  4. REVLIMID [Suspect]
     Dosage: 10 MILLIGRAM
     Route: 048
     Dates: start: 20101001
  5. DESONATE [Concomitant]
     Route: 065
  6. MOTRIN [Concomitant]
     Route: 065
  7. TEARGEN [Concomitant]
     Route: 065
  8. REVLIMID [Suspect]
     Indication: MULTIPLE MYELOMA
     Dosage: 25 MILLIGRAM
     Route: 048
     Dates: start: 20100528
  9. ASPIRIN [Concomitant]
     Route: 065
  10. CLARITIN [Concomitant]
     Route: 065
  11. ZANTAC [Concomitant]
     Route: 065

REACTIONS (2)
  - RENAL CYST [None]
  - RESPIRATORY DISORDER [None]
